FAERS Safety Report 24920389 (Version 1)
Quarter: 2025Q1

REPORT INFORMATION
  Report Type: Report from Study
  Country: US (occurrence: US)
  Receive Date: 20250204
  Receipt Date: 20250204
  Transmission Date: 20250409
  Serious: No
  Sender: EXELIXIS
  Company Number: US-EXELIXIS-CABO-24073836

PATIENT
  Age: 70 Year
  Sex: Male

DRUGS (8)
  1. CABOMETYX [Suspect]
     Active Substance: CABOZANTINIB S-MALATE
     Indication: Renal cancer
     Dates: start: 20231205, end: 20240206
  2. CABOMETYX [Suspect]
     Active Substance: CABOZANTINIB S-MALATE
     Indication: Prostate cancer
  3. TYLENOL [Concomitant]
     Active Substance: ACETAMINOPHEN
  4. LOSARTAN [Concomitant]
     Active Substance: LOSARTAN
  5. ZYRTEC [Concomitant]
     Active Substance: CETIRIZINE HYDROCHLORIDE
  6. DEXAMETHASONE [Concomitant]
     Active Substance: DEXAMETHASONE
  7. ASPIRIN [Concomitant]
     Active Substance: ASPIRIN
  8. PREDNISONE [Concomitant]
     Active Substance: PREDNISONE

REACTIONS (11)
  - Blood urine present [Recovered/Resolved]
  - Platelet count decreased [Unknown]
  - Nausea [Unknown]
  - Vomiting [Unknown]
  - Weight decreased [Unknown]
  - Diarrhoea [Unknown]
  - Constipation [Unknown]
  - Dysgeusia [Unknown]
  - Skin ulcer [Unknown]
  - Haemoglobin decreased [Unknown]
  - Prostatic specific antigen increased [Not Recovered/Not Resolved]

NARRATIVE: CASE EVENT DATE: 20240131
